FAERS Safety Report 23021678 (Version 1)
Quarter: 2023Q4

REPORT INFORMATION
  Report Type: Spontaneous
  Country: US (occurrence: None)
  Receive Date: 20231003
  Receipt Date: 20231003
  Transmission Date: 20240109
  Serious: Yes (Life-Threatening, Disabling)
  Sender: FDA-Public Use
  Company Number: None

PATIENT
  Age: 44 Year
  Sex: Female
  Weight: 49.5 kg

DRUGS (1)
  1. CIPRO [Suspect]
     Active Substance: CIPROFLOXACIN HYDROCHLORIDE
     Indication: Urinary tract infection
     Dates: start: 20081201, end: 20081203

REACTIONS (12)
  - Fatigue [None]
  - Brain fog [None]
  - Memory impairment [None]
  - Weight decreased [None]
  - Hypotonia [None]
  - Dizziness [None]
  - Syncope [None]
  - Dyspepsia [None]
  - Constipation [None]
  - Amenorrhoea [None]
  - Hot flush [None]
  - Temperature intolerance [None]

NARRATIVE: CASE EVENT DATE: 20090301
